FAERS Safety Report 6827577-0 (Version None)
Quarter: 2010Q3

REPORT INFORMATION
  Report Type: 
  Country: None (occurrence: None)
  Receive Date: 20100709
  Receipt Date: 20070406
  Transmission Date: 20110219
  Serious: No
  Sender: FDA-Public Use
  Company Number: US-PFIZER INC-2007005948

PATIENT
  Age: 56 Year
  Sex: Female

DRUGS (3)
  1. CHANTIX [Suspect]
     Dates: start: 20070108
  2. LIPITOR [Suspect]
     Indication: HYPERLIPIDAEMIA
  3. VALSARTAN [Concomitant]
     Indication: HYPERTENSION

REACTIONS (2)
  - ABNORMAL DREAMS [None]
  - MOOD SWINGS [None]
